FAERS Safety Report 12819171 (Version 1)
Quarter: 2016Q4

REPORT INFORMATION
  Report Type: Spontaneous
  Country: US (occurrence: US)
  Receive Date: 20161006
  Receipt Date: 20161006
  Transmission Date: 20170207
  Serious: No
  Sender: FDA-Public Use
  Company Number: US-AMGEN-USASL2016014924

PATIENT
  Age: 73 Year
  Sex: Female

DRUGS (2)
  1. LOVASTATIN. [Suspect]
     Active Substance: LOVASTATIN
     Indication: PRODUCT USED FOR UNKNOWN INDICATION
     Dosage: UNK
     Route: 065
  2. PROLIA [Suspect]
     Active Substance: DENOSUMAB
     Indication: PRODUCT USED FOR UNKNOWN INDICATION
     Dosage: UNK, Q6MO
     Route: 065

REACTIONS (6)
  - Insomnia [Recovered/Resolved]
  - Weight increased [Unknown]
  - Myalgia [Recovered/Resolved]
  - Cough [Recovered/Resolved]
  - Hypoacusis [Unknown]
  - Pain in extremity [Recovered/Resolved]
